FAERS Safety Report 6977431-9 (Version None)
Quarter: 2010Q3

REPORT INFORMATION
  Report Type: 
  Country: None (occurrence: None)
  Receive Date: 20100910
  Receipt Date: 20100829
  Transmission Date: 20110219
  Serious: Yes (Other)
  Sender: FDA-Public Use
  Company Number: US-BAUSCH-2010BL004980

PATIENT
  Age: 83 Year
  Sex: Male

DRUGS (1)
  1. BRIMONIDINE [Suspect]
     Indication: OPEN ANGLE GLAUCOMA
     Route: 047
     Dates: start: 20061001

REACTIONS (2)
  - CONJUNCTIVITIS [None]
  - UVEITIS [None]
